FAERS Safety Report 19115426 (Version 1)
Quarter: 2021Q2

REPORT INFORMATION
  Report Type: Spontaneous
  Country: CN (occurrence: CN)
  Receive Date: 20210409
  Receipt Date: 20210409
  Transmission Date: 20210717
  Serious: Yes (Hospitalization, Other)
  Sender: FDA-Public Use
  Company Number: CN-PFIZER INC-2021361409

PATIENT
  Age: 66 Year
  Sex: Male

DRUGS (1)
  1. CYTARABINE. [Suspect]
     Active Substance: CYTARABINE
     Indication: ACUTE MYELOID LEUKAEMIA
     Dosage: 0.2 G, 1X/DAY
     Route: 041
     Dates: start: 20201224, end: 20201231

REACTIONS (2)
  - C-reactive protein increased [Unknown]
  - Myelosuppression [Recovering/Resolving]

NARRATIVE: CASE EVENT DATE: 20210102
